FAERS Safety Report 6308208-5 (Version None)
Quarter: 2009Q3

REPORT INFORMATION
  Report Type: 
  Country: None (occurrence: None)
  Receive Date: 20090813
  Receipt Date: 20090804
  Transmission Date: 20100115
  Serious: Yes (Disabling)
  Sender: FDA-Public Use
  Company Number: DK-PFIZER INC-2007051044

PATIENT
  Age: 36 Year

DRUGS (1)
  1. VFEND [Suspect]
     Indication: FUNGAL INFECTION
     Route: 048
     Dates: start: 20070331, end: 20070411

REACTIONS (3)
  - HYPOACUSIS [None]
  - MEMORY IMPAIRMENT [None]
  - TINNITUS [None]
